FAERS Safety Report 6433000-0 (Version None)
Quarter: 2009Q4

REPORT INFORMATION
  Report Type: 
  Country: None (occurrence: None)
  Receive Date: 20091105
  Receipt Date: 20091029
  Transmission Date: 20100525
  Serious: Yes (Hospitalization, Other)
  Sender: FDA-Public Use
  Company Number: 2009011944

PATIENT
  Age: 68 Year
  Sex: Female

DRUGS (11)
  1. ACTIQ [Suspect]
     Dosage: BU
     Route: 002
  2. MIDAZOLAM HCL [Suspect]
     Dates: start: 20090721
  3. PROPOFOL [Suspect]
     Dates: start: 20090721
  4. AZD4877 (ONCOLOGY STUDY DRUG) (CHEMOTHERAPEUTICS NOS) [Suspect]
     Indication: TRANSITIONAL CELL CARCINOMA
     Dosage: 2.8571 MG (20 MG, 1 IN 1 WK), INTRAVENOUS; 3.5714 MG (25 MG, 1 IN 1 WK), INTRAVENOUS
     Route: 042
     Dates: start: 20090128, end: 20090520
  5. AZD4877 (ONCOLOGY STUDY DRUG) (CHEMOTHERAPEUTICS NOS) [Suspect]
     Indication: TRANSITIONAL CELL CARCINOMA
     Dosage: 2.8571 MG (20 MG, 1 IN 1 WK), INTRAVENOUS; 3.5714 MG (25 MG, 1 IN 1 WK), INTRAVENOUS
     Route: 042
     Dates: start: 20090527
  6. IBUPROFEN TABLETS [Concomitant]
  7. OMEPRAZOLE [Concomitant]
  8. GENTAMICIN [Concomitant]
  9. ONDANSETRON [Concomitant]
  10. CHLORPHENIRAMINE MALEATE [Concomitant]
  11. TRIMETHOPRIM [Concomitant]

REACTIONS (5)
  - INFUSION SITE PAIN [None]
  - NEUTROPENIA [None]
  - PULMONARY EMBOLISM [None]
  - PYREXIA [None]
  - VOMITING [None]
